FAERS Safety Report 14862203 (Version 2)
Quarter: 2018Q4

REPORT INFORMATION
  Report Type: Spontaneous
  Country: US (occurrence: US)
  Receive Date: 20180508
  Receipt Date: 20181005
  Transmission Date: 20190204
  Serious: Yes (Other)
  Sender: FDA-Public Use
  Company Number: US-SA-2018SA129415

PATIENT
  Age: 33 Year
  Sex: Female

DRUGS (2)
  1. LEMTRADA [Suspect]
     Active Substance: ALEMTUZUMAB
     Dosage: UNK UNK,UNK
     Route: 041
     Dates: start: 2016, end: 2016
  2. LEMTRADA [Suspect]
     Active Substance: ALEMTUZUMAB
     Indication: MULTIPLE SCLEROSIS
     Dosage: UNK UNK,UNK
     Route: 041
     Dates: start: 201509, end: 201509

REACTIONS (5)
  - Aspartate aminotransferase increased [Recovering/Resolving]
  - Autoimmune hepatitis [Recovering/Resolving]
  - Cholelithiasis [Unknown]
  - Alanine aminotransferase increased [Recovering/Resolving]
  - Basedow^s disease [Unknown]

NARRATIVE: CASE EVENT DATE: 2016
